FAERS Safety Report 9631846 (Version 1)
Quarter: 2013Q4

REPORT INFORMATION
  Report Type: Spontaneous
  Country: US (occurrence: US)
  Receive Date: 20131018
  Receipt Date: 20131018
  Transmission Date: 20140711
  Serious: No
  Sender: FDA-Public Use
  Company Number: US-ASTELLAS-2012US011156

PATIENT
  Sex: Male

DRUGS (1)
  1. MYCAMINE [Suspect]
     Indication: SEPSIS
     Dosage: 20 MG, UNKNOWN/D
     Route: 042
     Dates: start: 20121019, end: 20121025

REACTIONS (1)
  - Off label use [Unknown]
